FAERS Safety Report 5926935-6 (Version None)
Quarter: 2008Q4

REPORT INFORMATION
  Report Type: 
  Country: None (occurrence: None)
  Receive Date: 20081017
  Receipt Date: 20081003
  Transmission Date: 20090506
  Serious: Yes (Hospitalization)
  Sender: FDA-Public Use
  Company Number: 2008BI023235

PATIENT
  Age: 38 Year
  Sex: Male

DRUGS (5)
  1. TYSABRI [Suspect]
     Indication: RELAPSING-REMITTING MULTIPLE SCLEROSIS
     Dosage: 300 MG;QM;IV, 300 MG;QM;IV
     Route: 042
     Dates: start: 20071023, end: 20080818
  2. TYSABRI [Suspect]
     Indication: RELAPSING-REMITTING MULTIPLE SCLEROSIS
     Dosage: 300 MG;QM;IV, 300 MG;QM;IV
     Route: 042
     Dates: start: 20080918
  3. . [Concomitant]
  4. UNSPECIFIED MULTIPLE UNKNOWN [Concomitant]
  5. SCLEROSIS TREATMENTS [Concomitant]

REACTIONS (5)
  - FALL [None]
  - HEAD INJURY [None]
  - INFLUENZA [None]
  - MULTIPLE SCLEROSIS RELAPSE [None]
  - PERIORBITAL HAEMATOMA [None]
